FAERS Safety Report 5413187-9 (Version None)
Quarter: 2007Q3

REPORT INFORMATION
  Report Type: 
  Country: None (occurrence: None)
  Receive Date: 20070814
  Receipt Date: 20070808
  Transmission Date: 20080115
  Serious: Yes (Hospitalization, Disabling)
  Sender: FDA-Public Use
  Company Number: PHNU2006DE00509

PATIENT
  Age: 70 Year
  Sex: Female

DRUGS (1)
  1. ZOMETA [Suspect]
     Indication: MULTIPLE MYELOMA
     Dosage: 4 MG, QMO
     Route: 042
     Dates: start: 20030601

REACTIONS (8)
  - ABSCESS [None]
  - BIOPSY BONE ABNORMAL [None]
  - HYPOAESTHESIA [None]
  - OSTEOMYELITIS [None]
  - PAIN [None]
  - SCINTIGRAPHY [None]
  - SINGLE PHOTON EMISSION COMPUTERISED TOMOGRAM ABNORMAL [None]
  - SWELLING [None]
